FAERS Safety Report 9318090 (Version 1)
Quarter: 2013Q2

REPORT INFORMATION
  Report Type: Spontaneous
  Country: US (occurrence: US)
  Receive Date: 20130530
  Receipt Date: 20130530
  Transmission Date: 20140414
  Serious: No
  Sender: FDA-Public Use
  Company Number: US-GLAXOSMITHKLINE-A1004564A

PATIENT
  Age: 4 Year
  Sex: Female

DRUGS (5)
  1. VENTOLIN [Suspect]
     Indication: COUGH
     Dosage: 2PUFF EVERY 4 DAYS
     Route: 055
     Dates: start: 20121205
  2. SINGULAIR [Suspect]
     Dosage: 1TAB PER DAY
     Route: 065
     Dates: start: 20121203
  3. CEFDINIR [Suspect]
     Dosage: 1TSP PER DAY
     Route: 065
     Dates: start: 20121203
  4. PREDNISOLONE [Suspect]
     Dosage: 1TSP PER DAY
     Route: 065
     Dates: start: 20121203
  5. NO CONCURRENT MEDICATION [Concomitant]

REACTIONS (3)
  - Drug ineffective [Unknown]
  - Drug ineffective [Unknown]
  - Product quality issue [Unknown]
